FAERS Safety Report 4376689-2 (Version None)
Quarter: 2004Q2

REPORT INFORMATION
  Report Type: 
  Country: None (occurrence: None)
  Receive Date: 20040608
  Receipt Date: 20040526
  Transmission Date: 20050107
  Serious: Yes (Hospitalization)
  Sender: FDA-Public Use
  Company Number: 04P-163-0262217-00

PATIENT
  Age: 48 Year
  Sex: Female
  Weight: 78.4723 kg

DRUGS (7)
  1. HUMIRA [Suspect]
     Indication: RHEUMATOID ARTHRITIS
     Dosage: 40 MG, 1 IN 2 WK, SUBCUTANEOUS
     Route: 058
     Dates: start: 20031101, end: 20040429
  2. LEVOTHYROXINE SODIUM [Concomitant]
  3. HYDROXYCHLOROQUINE PHOSPHATE [Concomitant]
  4. MONTELUKAST SODIUM [Concomitant]
  5. MULTI-VITAMINS [Concomitant]
  6. CALCIUM CARBONATE [Concomitant]
  7. IRON [Concomitant]

REACTIONS (1)
  - AUTOIMMUNE THYROIDITIS [None]
